FAERS Safety Report 17487222 (Version 1)
Quarter: 2020Q1

REPORT INFORMATION
  Report Type: Spontaneous
  Country: US (occurrence: US)
  Receive Date: 20200303
  Receipt Date: 20200303
  Transmission Date: 20200409
  Serious: Yes (Other)
  Sender: FDA-Public Use
  Company Number: US-ROCHE-2529548

PATIENT

DRUGS (1)
  1. ERIVEDGE [Suspect]
     Active Substance: VISMODEGIB
     Indication: BASAL CELL CARCINOMA
     Dosage: UNKNOWN
     Route: 048

REACTIONS (5)
  - Decreased appetite [Not Recovered/Not Resolved]
  - Taste disorder [Not Recovered/Not Resolved]
  - Sinusitis [Unknown]
  - Weight decreased [Not Recovered/Not Resolved]
  - Chronic obstructive pulmonary disease [Unknown]
